FAERS Safety Report 25980638 (Version 3)
Quarter: 2025Q4

REPORT INFORMATION
  Report Type: Report from Study
  Country: US (occurrence: US)
  Receive Date: 20251030
  Receipt Date: 20251128
  Transmission Date: 20260117
  Serious: Yes (Other)
  Sender: MALLINCKRODT
  Company Number: US-MALLINCKRODT-MNK202506790

PATIENT
  Age: 60 Year
  Sex: Female

DRUGS (3)
  1. CORTICOTROPIN [Suspect]
     Active Substance: CORTICOTROPIN
     Indication: Rheumatoid arthritis
     Route: 058
     Dates: start: 202504
  2. ORENCIA [Concomitant]
     Active Substance: ABATACEPT
     Dosage: UNKNOWN
  3. INFLUENZA VIRUS VACCINE [Concomitant]
     Active Substance: INFLUENZA VIRUS VACCINE
     Indication: Influenza immunisation
     Dosage: UNKNOWN

REACTIONS (5)
  - Cushing^s syndrome [Unknown]
  - Arthropathy [Unknown]
  - Joint swelling [Unknown]
  - Malaise [Not Recovered/Not Resolved]
  - Blood glucose increased [Unknown]

NARRATIVE: CASE EVENT DATE: 20250101
